FAERS Safety Report 9910379 (Version 1)
Quarter: 2014Q1

REPORT INFORMATION
  Report Type: Spontaneous
  Country: FR (occurrence: FR)
  Receive Date: 20140219
  Receipt Date: 20140219
  Transmission Date: 20141002
  Serious: Yes (Death)
  Sender: FDA-Public Use
  Company Number: FR-PFIZER INC-2014042449

PATIENT
  Age: 85 Year
  Sex: Female

DRUGS (8)
  1. TAHOR [Suspect]
     Dosage: 10 MG, 1X/DAY
     Route: 048
     Dates: end: 20140120
  2. CORDARONE [Suspect]
     Dosage: 1 DF, 5X /WEEK
     Route: 048
     Dates: start: 201310, end: 20140120
  3. FLUDEX [Concomitant]
     Dosage: 1 DF, 1X/DAY
     Route: 048
     Dates: end: 20140120
  4. LEVOTHYROX [Concomitant]
     Dosage: 37.5 UG, 1X/DAY
     Route: 048
     Dates: end: 20140120
  5. KARDEGIC [Concomitant]
     Dosage: 160 MG, 1X/DAY
     Route: 048
     Dates: end: 20140120
  6. FOSAMAX [Concomitant]
     Dosage: 70 MG, WEEKLY
     Route: 048
     Dates: end: 20140120
  7. OROCAL [Concomitant]
     Dosage: UNK
     Route: 048
     Dates: end: 20140120
  8. KALEORID [Concomitant]
     Dosage: UNK
     Route: 048
     Dates: end: 20140120

REACTIONS (1)
  - Interstitial lung disease [Fatal]
